FAERS Safety Report 4710123-5 (Version None)
Quarter: 2005Q3

REPORT INFORMATION
  Report Type: 
  Country: None (occurrence: None)
  Receive Date: 20050708
  Receipt Date: 20050708
  Transmission Date: 20060218
  Serious: Yes (Other)
  Sender: FDA-Public Use
  Company Number: None

PATIENT
  Age: 58 Year
  Sex: Female
  Weight: 80 kg

DRUGS (11)
  1. BACTRIM [Suspect]
     Indication: URINARY TRACT INFECTION
     Dosage: 800/160MG   PO  BID
     Route: 048
     Dates: start: 20050616, end: 20050622
  2. FIBERCON [Concomitant]
  3. QUESTRAN [Concomitant]
  4. KLONOPIN [Concomitant]
  5. PEPCID [Concomitant]
  6. LASIX [Concomitant]
  7. SYNTHROID [Concomitant]
  8. ANTIVERT [Concomitant]
  9. NASTATIN [Concomitant]
  10. POTASSIUM CHLORIDE [Concomitant]
  11. PREDNISONE [Concomitant]

REACTIONS (1)
  - RASH [None]
